FAERS Safety Report 7685155-8 (Version None)
Quarter: 2011Q3

REPORT INFORMATION
  Report Type: 
  Country: None (occurrence: None)
  Receive Date: 20110816
  Receipt Date: 20110803
  Transmission Date: 20111222
  Serious: Yes (Other)
  Sender: FDA-Public Use
  Company Number: ES-PFIZER INC-2011174635

PATIENT
  Age: 37 Year
  Sex: Male

DRUGS (8)
  1. DOXORUBICIN HCL [Suspect]
     Indication: HODGKIN'S DISEASE STAGE IV
     Dosage: UNK
     Dates: start: 19890101
  2. VINCRISTINE SULFATE [Suspect]
     Indication: HODGKIN'S DISEASE STAGE IV
     Dosage: UNK
     Dates: start: 19890101
  3. CHLORMETHINE [Suspect]
     Indication: HODGKIN'S DISEASE STAGE IV
     Dosage: UNK
     Dates: start: 19890101
  4. BLEOMYCIN [Suspect]
     Indication: HODGKIN'S DISEASE STAGE IV
     Dosage: UNK
     Dates: start: 19890101
  5. PROCARBAZINE HYDROCHLORIDE [Suspect]
     Indication: HODGKIN'S DISEASE STAGE IV
     Dosage: UNK
     Dates: start: 19890101
  6. VINBLASTINE SULFATE [Suspect]
     Indication: HODGKIN'S DISEASE STAGE IV
     Dosage: UNK
     Dates: start: 19890101
  7. DACARBAZINE [Suspect]
     Indication: HODGKIN'S DISEASE STAGE IV
     Dosage: UNK
     Dates: start: 19890101
  8. PREDNISONE [Suspect]
     Indication: HODGKIN'S DISEASE STAGE IV
     Dosage: UNK
     Dates: start: 19890101

REACTIONS (1)
  - MYELOID METAPLASIA [None]
